FAERS Safety Report 7530364-1 (Version None)
Quarter: 2011Q2

REPORT INFORMATION
  Report Type: 
  Country: None (occurrence: None)
  Receive Date: 20110607
  Receipt Date: 20110524
  Transmission Date: 20111010
  Serious: Yes (Other)
  Sender: FDA-Public Use
  Company Number: DE-UCBSA-033861

PATIENT
  Sex: Male

DRUGS (5)
  1. PREDNISOLONE [Concomitant]
     Indication: SERONEGATIVE ARTHRITIS
     Dates: start: 20070212
  2. ADENURIC [Concomitant]
     Indication: HYPERURICAEMIA
     Dates: start: 20100531
  3. CIMZIA [Suspect]
     Indication: RHEUMATOID ARTHRITIS
     Route: 058
  4. RAMIPLUS [Concomitant]
     Indication: HYPERTENSION
     Dosage: 2.5 MG RAMIPRIL; 12.5 MG HYDROCHLOROTHIAZIDE
     Dates: start: 20100702
  5. METAMIZOL [Concomitant]
     Indication: RHEUMATOID ARTHRITIS
     Dates: start: 20100702

REACTIONS (1)
  - DERMATITIS PSORIASIFORM [None]
